FAERS Safety Report 20546642 (Version 3)
Quarter: 2022Q3

REPORT INFORMATION
  Report Type: Report from Study
  Country: CN (occurrence: None)
  Receive Date: 20220303
  Receipt Date: 20220909
  Transmission Date: 20221026
  Serious: Yes (Hospitalization)
  Sender: FDA-Public Use
  Company Number: CN-Eisai Medical Research-EC-2022-109836

PATIENT
  Age: 72 Year
  Sex: Male
  Weight: 64 kg

DRUGS (11)
  1. LENVATINIB [Suspect]
     Active Substance: LENVATINIB
     Indication: Malignant melanoma
     Route: 048
     Dates: start: 20210714, end: 20211114
  2. LENVATINIB [Suspect]
     Active Substance: LENVATINIB
     Route: 048
     Dates: start: 20211115, end: 20211117
  3. PEMBROLIZUMAB [Suspect]
     Active Substance: PEMBROLIZUMAB
     Indication: Malignant melanoma
     Route: 041
     Dates: start: 20210714, end: 20210804
  4. PEMBROLIZUMAB [Suspect]
     Active Substance: PEMBROLIZUMAB
     Route: 041
     Dates: start: 20210825, end: 20210915
  5. PEMBROLIZUMAB [Suspect]
     Active Substance: PEMBROLIZUMAB
     Route: 041
     Dates: start: 20211115
  6. ROCALTROL [Concomitant]
     Active Substance: CALCITRIOL
     Dates: start: 20210715
  7. CALTRATE PLUS-D [Concomitant]
     Dates: start: 20210715
  8. LOSARTAN [Concomitant]
     Active Substance: LOSARTAN
     Dates: start: 20210804, end: 20210811
  9. NIFEDIPINE [Concomitant]
     Active Substance: NIFEDIPINE
     Dates: start: 20210804, end: 20210804
  10. ACETAMINOPHEN [Concomitant]
     Active Substance: ACETAMINOPHEN
     Dates: start: 20210807, end: 20210808
  11. XGEVA [Concomitant]
     Active Substance: DENOSUMAB
     Dates: start: 20111229, end: 20211229

REACTIONS (1)
  - Rash [Recovered/Resolved]

NARRATIVE: CASE EVENT DATE: 20210811
